FAERS Safety Report 4728256-6 (Version None)
Quarter: 2005Q3

REPORT INFORMATION
  Report Type: 
  Country: None (occurrence: None)
  Receive Date: 20050727
  Receipt Date: 20050714
  Transmission Date: 20060218
  Serious: Yes (Disabling, Other)
  Sender: FDA-Public Use
  Company Number: 2005105072

PATIENT
  Sex: Female
  Weight: 131.5431 kg

DRUGS (2)
  1. ATARAX [Suspect]
     Indication: RASH PRURITIC
     Dosage: 10 MG (10 MG, ONCE DAILY AS NEEDED), ORAL
     Route: 048
  2. CHLORPHENIRAMINE (CHLORPHENIRAMINE) [Suspect]
     Indication: ILL-DEFINED DISORDER

REACTIONS (14)
  - BACK PAIN [None]
  - DRUG HYPERSENSITIVITY [None]
  - FATIGUE [None]
  - FEELING ABNORMAL [None]
  - INSOMNIA [None]
  - LOCALISED OEDEMA [None]
  - NEURALGIA [None]
  - PERFORMANCE STATUS DECREASED [None]
  - PRURITUS [None]
  - RASH [None]
  - ROAD TRAFFIC ACCIDENT [None]
  - SOMNOLENCE [None]
  - THINKING ABNORMAL [None]
  - URTICARIA [None]
